FAERS Safety Report 11781084 (Version 1)
Quarter: 2015Q4

REPORT INFORMATION
  Report Type: Spontaneous
  Country: DE (occurrence: DE)
  Receive Date: 20151126
  Receipt Date: 20151126
  Transmission Date: 20160305
  Serious: Yes (Life-Threatening)
  Sender: FDA-Public Use
  Company Number: DE-009507513-1511DEU014096

PATIENT
  Age: 80 Year
  Sex: Female

DRUGS (1)
  1. ZIENAM 500 [Suspect]
     Active Substance: CILASTATIN SODIUM\IMIPENEM
     Dosage: UNK
     Route: 042

REACTIONS (4)
  - Product deposit [Unknown]
  - Malaise [Unknown]
  - Underdose [Unknown]
  - Drug administration error [Unknown]
